FAERS Safety Report 7429642-6 (Version None)
Quarter: 2011Q2

REPORT INFORMATION
  Report Type: 
  Country: None (occurrence: None)
  Receive Date: 20110421
  Receipt Date: 20110408
  Transmission Date: 20111010
  Serious: Yes (Other)
  Sender: FDA-Public Use
  Company Number: DK-JNJFOC-20110404171

PATIENT
  Sex: Female

DRUGS (1)
  1. REMICADE [Suspect]
     Indication: CROHN'S DISEASE
     Route: 042

REACTIONS (5)
  - ANTIBODY TEST POSITIVE [None]
  - COLD SWEAT [None]
  - BLOOD PRESSURE DECREASED [None]
  - MALAISE [None]
  - INFUSION RELATED REACTION [None]
